FAERS Safety Report 7918296-8 (Version None)
Quarter: 2011Q4

REPORT INFORMATION
  Report Type: 
  Country: None (occurrence: None)
  Receive Date: 20111116
  Receipt Date: 20111110
  Transmission Date: 20120403
  Serious: Yes (Other)
  Sender: FDA-Public Use
  Company Number: ZA-GLAXOSMITHKLINE-B0762950A

PATIENT
  Sex: Female

DRUGS (2)
  1. XELODA [Suspect]
  2. TYKERB [Suspect]
     Indication: BREAST CANCER

REACTIONS (1)
  - HAEMOLYSIS [None]
